FAERS Safety Report 22651862 (Version 1)
Quarter: 2023Q2

REPORT INFORMATION
  Report Type: Spontaneous
  Country: US (occurrence: US)
  Receive Date: 20230628
  Receipt Date: 20230628
  Transmission Date: 20230721
  Serious: No
  Sender: FDA-Public Use
  Company Number: US-CTI BIOPHARMA-2023US03680

PATIENT

DRUGS (4)
  1. VONJO [Suspect]
     Active Substance: PACRITINIB
     Indication: Essential thrombocythaemia
     Dosage: 200 MG, BID
     Route: 048
     Dates: start: 20220915
  2. MECLIZINE HYDROCHLORIDE [Concomitant]
     Active Substance: MECLIZINE HYDROCHLORIDE
  3. ESCITALOPRAM [Concomitant]
     Active Substance: ESCITALOPRAM OXALATE
  4. DUTASTERIDE [Concomitant]
     Active Substance: DUTASTERIDE

REACTIONS (3)
  - Fatigue [Unknown]
  - Somnolence [Unknown]
  - Nasopharyngitis [Unknown]
